FAERS Safety Report 23960860 (Version 1)
Quarter: 2024Q2

REPORT INFORMATION
  Report Type: Spontaneous
  Country: US (occurrence: US)
  Receive Date: 20240611
  Receipt Date: 20240611
  Transmission Date: 20240716
  Serious: Yes (Other)
  Sender: FDA-Public Use
  Company Number: US-STRIDES ARCOLAB LIMITED-2023SP016614

PATIENT
  Sex: Female

DRUGS (60)
  1. DEXTROAMPHETAMINE [Suspect]
     Active Substance: DEXTROAMPHETAMINE
     Indication: Post-traumatic stress disorder
     Dosage: 5 MILLIGRAM, EXTENDED RELEASE
     Route: 065
  2. DEXTROAMPHETAMINE [Suspect]
     Active Substance: DEXTROAMPHETAMINE
     Indication: Major depression
  3. DEXTROAMPHETAMINE [Suspect]
     Active Substance: DEXTROAMPHETAMINE
     Indication: Depression
  4. DEXTROAMPHETAMINE [Suspect]
     Active Substance: DEXTROAMPHETAMINE
     Indication: Panic disorder
  5. PROPRANOLOL [Suspect]
     Active Substance: PROPRANOLOL HYDROCHLORIDE
     Indication: Major depression
     Dosage: 10 MILLIGRAM, TID
     Route: 065
  6. PROPRANOLOL [Suspect]
     Active Substance: PROPRANOLOL HYDROCHLORIDE
     Indication: Depression
  7. PROPRANOLOL [Suspect]
     Active Substance: PROPRANOLOL HYDROCHLORIDE
     Indication: Post-traumatic stress disorder
  8. PROPRANOLOL [Suspect]
     Active Substance: PROPRANOLOL HYDROCHLORIDE
     Indication: Panic disorder
  9. ZOLPIDEM [Suspect]
     Active Substance: ZOLPIDEM TARTRATE
     Indication: Major depression
     Dosage: UNK
     Route: 065
  10. ZOLPIDEM [Suspect]
     Active Substance: ZOLPIDEM TARTRATE
     Indication: Depression
     Dosage: UNK, TAPERED
     Route: 065
  11. ZOLPIDEM [Suspect]
     Active Substance: ZOLPIDEM TARTRATE
     Indication: Post-traumatic stress disorder
  12. ZOLPIDEM [Suspect]
     Active Substance: ZOLPIDEM TARTRATE
     Indication: Panic disorder
  13. PAROXETINE [Suspect]
     Active Substance: PAROXETINE
     Indication: Major depression
     Dosage: UNK
     Route: 065
  14. PAROXETINE [Suspect]
     Active Substance: PAROXETINE
     Indication: Depression
  15. PAROXETINE [Suspect]
     Active Substance: PAROXETINE
     Indication: Post-traumatic stress disorder
  16. PAROXETINE [Suspect]
     Active Substance: PAROXETINE
     Indication: Panic disorder
  17. VENLAFAXINE [Suspect]
     Active Substance: VENLAFAXINE HYDROCHLORIDE
     Indication: Major depression
     Dosage: 262.5 MILLIGRAM
     Route: 065
  18. VENLAFAXINE [Suspect]
     Active Substance: VENLAFAXINE HYDROCHLORIDE
     Indication: Depression
  19. VENLAFAXINE [Suspect]
     Active Substance: VENLAFAXINE HYDROCHLORIDE
     Indication: Post-traumatic stress disorder
  20. VENLAFAXINE [Suspect]
     Active Substance: VENLAFAXINE HYDROCHLORIDE
     Indication: Panic disorder
  21. DULOXETINE [Suspect]
     Active Substance: DULOXETINE
     Indication: Major depression
     Dosage: 60 MILLIGRAM, PER DAY
     Route: 065
  22. DULOXETINE [Suspect]
     Active Substance: DULOXETINE
     Indication: Depression
  23. DULOXETINE [Suspect]
     Active Substance: DULOXETINE
     Indication: Post-traumatic stress disorder
  24. DULOXETINE [Suspect]
     Active Substance: DULOXETINE
     Indication: Panic disorder
  25. TRAZODONE [Suspect]
     Active Substance: TRAZODONE HYDROCHLORIDE
     Indication: Major depression
     Dosage: UNK
     Route: 065
  26. TRAZODONE [Suspect]
     Active Substance: TRAZODONE HYDROCHLORIDE
     Indication: Depression
  27. TRAZODONE [Suspect]
     Active Substance: TRAZODONE HYDROCHLORIDE
     Indication: Post-traumatic stress disorder
  28. TRAZODONE [Suspect]
     Active Substance: TRAZODONE HYDROCHLORIDE
     Indication: Panic disorder
  29. CHLORPROMAZINE [Suspect]
     Active Substance: CHLORPROMAZINE
     Indication: Major depression
     Dosage: 100 MILLIGRAM, AT BED TIME
     Route: 065
  30. CHLORPROMAZINE [Suspect]
     Active Substance: CHLORPROMAZINE
     Indication: Depression
  31. CHLORPROMAZINE [Suspect]
     Active Substance: CHLORPROMAZINE
     Indication: Post-traumatic stress disorder
  32. CHLORPROMAZINE [Suspect]
     Active Substance: CHLORPROMAZINE
     Indication: Panic disorder
  33. RISPERIDONE [Suspect]
     Active Substance: RISPERIDONE
     Indication: Major depression
     Dosage: 2 MILLIGRAM
     Route: 065
  34. RISPERIDONE [Suspect]
     Active Substance: RISPERIDONE
     Indication: Depression
  35. RISPERIDONE [Suspect]
     Active Substance: RISPERIDONE
     Indication: Post-traumatic stress disorder
  36. RISPERIDONE [Suspect]
     Active Substance: RISPERIDONE
     Indication: Panic disorder
  37. ARIPIPRAZOLE [Suspect]
     Active Substance: ARIPIPRAZOLE
     Indication: Major depression
     Dosage: 15 MILLIGRAM
     Route: 065
  38. ARIPIPRAZOLE [Suspect]
     Active Substance: ARIPIPRAZOLE
     Indication: Depression
  39. ARIPIPRAZOLE [Suspect]
     Active Substance: ARIPIPRAZOLE
     Indication: Post-traumatic stress disorder
  40. ARIPIPRAZOLE [Suspect]
     Active Substance: ARIPIPRAZOLE
     Indication: Panic disorder
  41. LITHIUM [Suspect]
     Active Substance: LITHIUM
     Indication: Major depression
     Dosage: 900 MILLIGRAM
     Route: 065
  42. LITHIUM [Suspect]
     Active Substance: LITHIUM
     Indication: Depression
  43. LITHIUM [Suspect]
     Active Substance: LITHIUM
     Indication: Post-traumatic stress disorder
  44. LITHIUM [Suspect]
     Active Substance: LITHIUM
     Indication: Panic disorder
  45. GABAPENTIN [Suspect]
     Active Substance: GABAPENTIN
     Indication: Post-traumatic stress disorder
     Dosage: 600 MILLIGRAM, AT BED TIME
     Route: 065
  46. GABAPENTIN [Suspect]
     Active Substance: GABAPENTIN
     Indication: Major depression
  47. GABAPENTIN [Suspect]
     Active Substance: GABAPENTIN
     Indication: Depression
  48. GABAPENTIN [Suspect]
     Active Substance: GABAPENTIN
     Indication: Panic disorder
  49. CLONAZEPAM [Suspect]
     Active Substance: CLONAZEPAM
     Indication: Post-traumatic stress disorder
     Dosage: UNK
     Route: 065
  50. CLONAZEPAM [Suspect]
     Active Substance: CLONAZEPAM
     Indication: Major depression
     Dosage: UNK, TAPERED
     Route: 065
  51. CLONAZEPAM [Suspect]
     Active Substance: CLONAZEPAM
     Indication: Depression
  52. CLONAZEPAM [Suspect]
     Active Substance: CLONAZEPAM
     Indication: Panic disorder
  53. MIRTAZAPINE [Suspect]
     Active Substance: MIRTAZAPINE
     Indication: Post-traumatic stress disorder
     Dosage: UNK
     Route: 065
  54. MIRTAZAPINE [Suspect]
     Active Substance: MIRTAZAPINE
     Indication: Major depression
     Dosage: UNK, TAPERED
     Route: 065
  55. MIRTAZAPINE [Suspect]
     Active Substance: MIRTAZAPINE
     Indication: Depression
  56. MIRTAZAPINE [Suspect]
     Active Substance: MIRTAZAPINE
     Indication: Panic disorder
  57. PRAZOSIN [Concomitant]
     Active Substance: PRAZOSIN
     Indication: Major depression
     Dosage: 3 MILLIGRAM
     Route: 065
  58. PRAZOSIN [Concomitant]
     Active Substance: PRAZOSIN
     Indication: Depression
     Dosage: UNK, RESTARTED
     Route: 065
  59. PRAZOSIN [Concomitant]
     Active Substance: PRAZOSIN
     Indication: Post-traumatic stress disorder
  60. PRAZOSIN [Concomitant]
     Active Substance: PRAZOSIN
     Indication: Panic disorder

REACTIONS (3)
  - Treatment failure [Unknown]
  - Drug resistance [Unknown]
  - Off label use [Unknown]
